FAERS Safety Report 23460282 (Version 5)
Quarter: 2024Q3

REPORT INFORMATION
  Report Type: Spontaneous
  Country: US (occurrence: US)
  Receive Date: 20240131
  Receipt Date: 20240819
  Transmission Date: 20241017
  Serious: No
  Sender: SANOFI AVENTIS
  Company Number: US-SA-2023SA381835

PATIENT
  Age: 46 Year
  Sex: Male

DRUGS (2)
  1. DUPIXENT [Suspect]
     Active Substance: DUPILUMAB
     Indication: Dermatitis atopic
     Dosage: 300 MG, QOW
     Route: 058
  2. DUPIXENT [Suspect]
     Active Substance: DUPILUMAB
     Indication: Eczema
     Dosage: 300 MG, QW
     Route: 065
     Dates: start: 202310

REACTIONS (9)
  - Skin fissures [Not Recovered/Not Resolved]
  - Dry skin [Not Recovered/Not Resolved]
  - Injection site haemorrhage [Unknown]
  - Pruritus [Not Recovered/Not Resolved]
  - Injection site pain [Unknown]
  - Injection site swelling [Unknown]
  - Inappropriate schedule of product administration [Unknown]
  - Accidental exposure to product [Unknown]
  - Exposure via skin contact [Unknown]

NARRATIVE: CASE EVENT DATE: 20231001
